FAERS Safety Report 26135751 (Version 1)
Quarter: 2025Q4

REPORT INFORMATION
  Report Type: Spontaneous
  Country: EU (occurrence: EU)
  Receive Date: 20251209
  Receipt Date: 20251209
  Transmission Date: 20260117
  Serious: Yes (Other)
  Sender: PFIZER
  Company Number: None

PATIENT
  Age: 3 Year
  Sex: Male
  Weight: 15 kg

DRUGS (3)
  1. TOPOTECAN HYDROCHLORIDE [Suspect]
     Active Substance: TOPOTECAN HYDROCHLORIDE
     Indication: Neuroblastoma
     Dosage: 0.47 MG, 1X/DAY
     Route: 042
     Dates: start: 20251011, end: 20251015
  2. TEMOZOLOMIDE [Suspect]
     Active Substance: TEMOZOLOMIDE
     Indication: Neuroblastoma
     Dosage: 95 MG, 1X/DAY
     Route: 048
     Dates: start: 20251011, end: 20251015
  3. BACTRIM [Suspect]
     Active Substance: SULFAMETHOXAZOLE\TRIMETHOPRIM
     Indication: Prophylaxis
     Dosage: UNK
     Route: 048
     Dates: start: 20251013, end: 20251015

REACTIONS (2)
  - Hepatic cytolysis [Recovered/Resolved]
  - Off label use [Unknown]

NARRATIVE: CASE EVENT DATE: 20251011
